FAERS Safety Report 23167202 (Version 2)
Quarter: 2023Q4

REPORT INFORMATION
  Report Type: Spontaneous
  Country: US (occurrence: US)
  Receive Date: 20231109
  Receipt Date: 20231122
  Transmission Date: 20240110
  Serious: Yes (Death)
  Sender: FDA-Public Use
  Company Number: US-TEVA-2023-US-2942185

PATIENT
  Age: 23 Year
  Sex: Male
  Weight: 104 kg

DRUGS (5)
  1. FENTANYL [Suspect]
     Active Substance: FENTANYL\FENTANYL CITRATE
     Indication: Drug abuse
     Route: 065
  2. NICOTINE [Suspect]
     Active Substance: NICOTINE
     Indication: Drug abuse
     Route: 065
  3. AMPHETAMINE [Suspect]
     Active Substance: AMPHETAMINE
     Indication: Drug abuse
     Route: 065
  4. CAFFEINE [Suspect]
     Active Substance: CAFFEINE
     Indication: Drug abuse
     Route: 065
  5. OXYCODONE [Suspect]
     Active Substance: OXYCODONE
     Indication: Product used for unknown indication
     Route: 065

REACTIONS (8)
  - Pulmonary oedema [Fatal]
  - Brain oedema [Fatal]
  - Arteriosclerosis coronary artery [Fatal]
  - Aspiration [Fatal]
  - Toxicity to various agents [Fatal]
  - Overdose [Fatal]
  - Drug abuse [Fatal]
  - Counterfeit product administered [Fatal]
